FAERS Safety Report 4996239-7 (Version None)
Quarter: 2006Q2

REPORT INFORMATION
  Report Type: 
  Country: None (occurrence: None)
  Receive Date: 20060509
  Receipt Date: 20060427
  Transmission Date: 20061013
  Serious: Yes (Other)
  Sender: FDA-Public Use
  Company Number: PHBS2006JP06356

PATIENT
  Sex: Male

DRUGS (1)
  1. AREDIA [Suspect]
     Indication: BONE LESION
     Dosage: 45 MG
     Route: 042

REACTIONS (3)
  - DIABETES MELLITUS [None]
  - OSTEONECROSIS [None]
  - SURGERY [None]
